FAERS Safety Report 10143278 (Version 1)
Quarter: 2014Q2

REPORT INFORMATION
  Report Type: Spontaneous
  Country: US (occurrence: None)
  Receive Date: 20140429
  Receipt Date: 20140429
  Transmission Date: 20141212
  Serious: No
  Sender: FDA-Public Use
  Company Number: None

PATIENT
  Age: 84 Year
  Sex: Female

DRUGS (1)
  1. FORTEO [Suspect]
     Indication: PATHOLOGICAL FRACTURE
     Route: 058
     Dates: start: 20120526

REACTIONS (2)
  - Drug dose omission [None]
  - Cardiac pacemaker insertion [None]
